FAERS Safety Report 17028133 (Version 2)
Quarter: 2019Q4

REPORT INFORMATION
  Report Type: Spontaneous
  Country: CZ (occurrence: CZ)
  Receive Date: 20191113
  Receipt Date: 20191126
  Transmission Date: 20200122
  Serious: Yes (Hospitalization, Other)
  Sender: FDA-Public Use
  Company Number: CZ-MYLANLABS-2019M1108209

PATIENT
  Age: 67 Year
  Sex: Female

DRUGS (7)
  1. GUAIFENESIN. [Concomitant]
     Active Substance: GUAIFENESIN
     Indication: MUSCLE RELAXANT THERAPY
  2. KOFFEIN [Concomitant]
     Indication: CENTRAL NERVOUS SYSTEM STIMULATION
  3. METFORMIN [Concomitant]
     Active Substance: METFORMIN HYDROCHLORIDE
     Indication: DIABETES MELLITUS
     Dosage: UNK
  4. GUAIFENESIN. [Concomitant]
     Active Substance: GUAIFENESIN
     Indication: PRODUCTIVE COUGH
  5. PARACETAMOL [Concomitant]
     Active Substance: ACETAMINOPHEN
     Indication: ANALGESIC THERAPY
     Dosage: UNK
  6. GUAIFENESIN. [Concomitant]
     Active Substance: GUAIFENESIN
     Indication: ANXIOLYTIC THERAPY
  7. ZOLPIDEM [Suspect]
     Active Substance: ZOLPIDEM TARTRATE
     Indication: ANTIDEPRESSANT THERAPY
     Dosage: 20 MILLIGRAM, QD
     Route: 048

REACTIONS (10)
  - Depressed mood [Unknown]
  - Abulia [Unknown]
  - Anhedonia [Unknown]
  - Fatigue [Unknown]
  - Decreased appetite [Unknown]
  - Anxiety [Unknown]
  - Suicidal ideation [Unknown]
  - Psychomotor retardation [Unknown]
  - Insomnia [Unknown]
  - Therapeutic product effect incomplete [Unknown]
